FAERS Safety Report 17127537 (Version 1)
Quarter: 2019Q4

REPORT INFORMATION
  Report Type: Spontaneous
  Country: JP (occurrence: JP)
  Receive Date: 20191209
  Receipt Date: 20191209
  Transmission Date: 20200122
  Serious: Yes (Other)
  Sender: FDA-Public Use
  Company Number: JP-MACLEODS PHARMACEUTICALS US LTD-MAC2019024218

PATIENT

DRUGS (5)
  1. OLANZAPINE 10 MG [Suspect]
     Active Substance: OLANZAPINE
     Dosage: 10 MILLIGRAM, QD
     Route: 065
  2. OLANZAPINE 10 MG [Suspect]
     Active Substance: OLANZAPINE
     Dosage: 20 MILLIGRAM
     Route: 065
  3. QUETIAPINE 100 MG [Suspect]
     Active Substance: QUETIAPINE
     Indication: SCHIZOPHRENIA
     Dosage: 100 MILLIGRAM
     Route: 065
  4. OLANZAPINE 10 MG [Suspect]
     Active Substance: OLANZAPINE
     Indication: SCHIZOPHRENIA
     Dosage: 10 MILLIGRAM, QD
     Route: 065
  5. OLANZAPINE 10 MG [Suspect]
     Active Substance: OLANZAPINE
     Dosage: 20 MILLIGRAM
     Route: 065

REACTIONS (2)
  - Restless legs syndrome [Recovered/Resolved]
  - Dystonia [Recovered/Resolved]
